FAERS Safety Report 23861064 (Version 2)
Quarter: 2024Q2

REPORT INFORMATION
  Report Type: Spontaneous
  Country: US (occurrence: US)
  Receive Date: 20240516
  Receipt Date: 20240528
  Transmission Date: 20240716
  Serious: Yes (Hospitalization)
  Sender: FDA-Public Use
  Company Number: US-TEVA-VS-3197091

PATIENT
  Age: 39 Year
  Sex: Female

DRUGS (4)
  1. MORPHINE [Suspect]
     Active Substance: MORPHINE
     Indication: Pain
     Dosage: RECEIVED AT A DOSE OF 5000 OME
     Route: 065
  2. KETAMINE [Suspect]
     Active Substance: KETAMINE
     Indication: Pain
     Dosage: RECEIVED OVER 36HRS
     Route: 042
  3. HYDROMORPHONE [Suspect]
     Active Substance: HYDROMORPHONE
     Indication: Pain
     Route: 065
  4. METHADONE [Suspect]
     Active Substance: METHADONE HYDROCHLORIDE
     Indication: Pain
     Dosage: UP TITRATED TO 8000OME DURING HOSPITALISATION
     Route: 065

REACTIONS (3)
  - Drug ineffective [Unknown]
  - Dissociation [Recovered/Resolved]
  - Anxiety [Recovered/Resolved]
